FAERS Safety Report 9312278 (Version 1)
Quarter: 2013Q1

REPORT INFORMATION
  Report Type: Spontaneous
  Country: US (occurrence: None)
  Receive Date: 20130212
  Receipt Date: 20130212
  Transmission Date: 20140127
  Serious: Yes (Hospitalization, Other)
  Sender: FDA-Public Use
  Company Number: AUR-APL-2010-00281

PATIENT
  Age: 6 Year
  Sex: Female

DRUGS (3)
  1. CEFTRIAXONE (CEFTRIAXONE) [Suspect]
     Indication: MENINGITIS
  2. VANCOMYCIN (VANCOMYCIN) [Concomitant]
  3. DEXAMETHASONE (DEXAMETHASONE) [Concomitant]

REACTIONS (8)
  - Haemolytic anaemia [None]
  - Periorbital oedema [None]
  - Urticaria [None]
  - Tremor [None]
  - Tachypnoea [None]
  - Vomiting [None]
  - Pallor [None]
  - Back pain [None]
